FAERS Safety Report 5677351-6 (Version None)
Quarter: 2008Q1

REPORT INFORMATION
  Report Type: 
  Country: None (occurrence: None)
  Receive Date: 20080320
  Receipt Date: 20080320
  Transmission Date: 20080703
  Serious: Yes (Other)
  Sender: FDA-Public Use
  Company Number: None

PATIENT
  Age: 83 Year
  Sex: Female
  Weight: 71.2147 kg

DRUGS (1)
  1. OXALIPLATIN 100 MG SANOFI AVENTIS [Suspect]
     Indication: COLON CANCER
     Dosage: 230 MG EVERY 3 WEEKS IV
     Route: 042
     Dates: start: 20080205, end: 20080318

REACTIONS (1)
  - DYSPNOEA [None]
